FAERS Safety Report 6123693-X (Version None)
Quarter: 2009Q1

REPORT INFORMATION
  Report Type: 
  Country: None (occurrence: None)
  Receive Date: 20090319
  Receipt Date: 20090312
  Transmission Date: 20090719
  Serious: Yes (Hospitalization, Other)
  Sender: FDA-Public Use
  Company Number: US-ABBOTT-09P-163-0558200-00

PATIENT
  Sex: Female
  Weight: 74.91 kg

DRUGS (7)
  1. HUMIRA [Suspect]
     Indication: CROHN'S DISEASE
     Route: 058
     Dates: start: 20080208, end: 20080808
  2. CYMBALTA [Concomitant]
     Indication: DEPRESSION
     Route: 048
  3. ADDERALL XR 20 [Concomitant]
     Indication: ATTENTION DEFICIT/HYPERACTIVITY DISORDER
     Route: 048
  4. LUNESTA [Concomitant]
     Indication: INSOMNIA
     Route: 048
  5. PHENTERMINE [Concomitant]
     Indication: WEIGHT DECREASED
     Route: 048
  6. VIVANSE [Concomitant]
     Indication: ATTENTION DEFICIT/HYPERACTIVITY DISORDER
     Route: 048
  7. SEROQUEL [Concomitant]
     Indication: DEPRESSION
     Route: 048

REACTIONS (1)
  - ILL-DEFINED DISORDER [None]
